FAERS Safety Report 7671752-2 (Version None)
Quarter: 2011Q3

REPORT INFORMATION
  Report Type: 
  Country: None (occurrence: None)
  Receive Date: 20110727
  Receipt Date: 20110711
  Transmission Date: 20111222
  Serious: Yes (Hospitalization)
  Sender: FDA-Public Use
  Company Number: 2011PROUSA00441

PATIENT
  Age: 81 Year
  Sex: Male

DRUGS (3)
  1. PROVENGE [Suspect]
     Indication: PROSTATE CANCER METASTATIC
     Dosage: 250 ML, SINGLE, INTRAVENOS; 250 ML, SINGLE, INTRAVENOUS
     Route: 042
     Dates: start: 20110613, end: 20110613
  2. PROVENGE [Suspect]
     Indication: PROSTATE CANCER METASTATIC
     Dosage: 250 ML, SINGLE, INTRAVENOS; 250 ML, SINGLE, INTRAVENOUS
     Route: 042
     Dates: start: 20110627, end: 20110627
  3. PROVENGE [Suspect]

REACTIONS (16)
  - PYREXIA [None]
  - CHILLS [None]
  - CONFUSIONAL STATE [None]
  - DISORIENTATION [None]
  - HYPERHIDROSIS [None]
  - DYSPNOEA [None]
  - ABDOMINAL DISCOMFORT [None]
  - DELUSION [None]
  - VOMITING [None]
  - BLOOD PRESSURE INCREASED [None]
  - HYPOXIA [None]
  - RESTLESSNESS [None]
  - NAUSEA [None]
  - URINARY INCONTINENCE [None]
  - PALLOR [None]
  - PAIN [None]
